FAERS Safety Report 15997423 (Version 5)
Quarter: 2019Q2

REPORT INFORMATION
  Report Type: Report from Study
  Country: IT (occurrence: IT)
  Receive Date: 20190222
  Receipt Date: 20190507
  Transmission Date: 20190711
  Serious: Yes (Hospitalization, Disabling, Other)
  Sender: FDA-Public Use
  Company Number: IT-EXELIXIS-XL18419018873

PATIENT
  Age: 69 Year
  Sex: Male
  Weight: 65 kg

DRUGS (11)
  1. RIFAXIMINA [Concomitant]
     Active Substance: RIFAXIMIN
  2. ESKIM [Concomitant]
     Active Substance: OMEGA-3 FATTY ACIDS
  3. ABSORCOL [Concomitant]
  4. CARDIO AAS [Concomitant]
     Active Substance: ASPIRIN
  5. EUTIROX [Concomitant]
     Active Substance: LEVOTHYROXINE SODIUM
  6. NORMOLIP [Concomitant]
  7. MOVICOL [Concomitant]
     Active Substance: POLYETHYLENE GLYCOL 3350\POTASSIUM CHLORIDE\SODIUM BICARBONATE\SODIUM CHLORIDE
  8. BIVIS [Concomitant]
     Active Substance: AMLODIPINE BESYLATE\OLMESARTAN MEDOXOMIL
  9. XL184 [Suspect]
     Active Substance: CABOZANTINIB
     Indication: TRANSITIONAL CELL CARCINOMA
     Dosage: 40 MG, QD
     Route: 048
     Dates: start: 20181031, end: 20190201
  10. ATEZOLIZUMAB. [Suspect]
     Active Substance: ATEZOLIZUMAB
     Indication: TRANSITIONAL CELL CARCINOMA
     Dosage: 1200 MG, Q3WEEKS
     Route: 042
     Dates: start: 20181031, end: 20190213
  11. OMEPRAZOLE. [Concomitant]
     Active Substance: OMEPRAZOLE

REACTIONS (2)
  - Glaucoma [Not Recovered/Not Resolved]
  - Myasthenia gravis [Not Recovered/Not Resolved]

NARRATIVE: CASE EVENT DATE: 20190201
